FAERS Safety Report 25085675 (Version 2)
Quarter: 2025Q1

REPORT INFORMATION
  Report Type: Spontaneous
  Country: IN (occurrence: IN)
  Receive Date: 20250317
  Receipt Date: 20250321
  Transmission Date: 20250409
  Serious: Yes (Other)
  Sender: PFIZER
  Company Number: IN-PFIZER INC-PV202400168135

PATIENT
  Age: 53 Year
  Sex: Male
  Weight: 76 kg

DRUGS (9)
  1. LORLATINIB [Suspect]
     Active Substance: LORLATINIB
     Indication: Lung adenocarcinoma stage III
     Dosage: 100 MG, 1X/DAY (ONCE DAILY)
     Route: 048
     Dates: start: 20241202
  2. ACETYLCYSTEINE [Concomitant]
     Active Substance: ACETYLCYSTEINE
     Dates: start: 20250207
  3. AZITRAL [AZITHROMYCIN] [Concomitant]
     Dosage: 500 MG, 1X/DAY (FOR 5 DAYS)
     Route: 048
     Dates: start: 20250207
  4. ACETAMINOPHEN [Concomitant]
     Active Substance: ACETAMINOPHEN
     Indication: Pain
     Route: 048
  5. RANITIDINE HYDROCHLORIDE [Concomitant]
     Active Substance: RANITIDINE HYDROCHLORIDE
     Indication: Hyperchlorhydria
     Route: 048
  6. CCM [CALCIUM CARBONATE] [Concomitant]
     Dosage: 500 MG, 1X/DAY
     Route: 048
  7. ATORVASTATIN CALCIUM [Concomitant]
     Active Substance: ATORVASTATIN CALCIUM
     Dosage: 20 MG, DAILY (TAKE AT BED TIME)
     Route: 048
  8. SHELCAL XT [Concomitant]
     Dosage: 1 DF, 1X/DAY (3 MONTHS)
     Route: 048
  9. PANTOPRAZOLE SODIUM [Concomitant]
     Active Substance: PANTOPRAZOLE SODIUM
     Indication: Hyperchlorhydria
     Route: 048

REACTIONS (19)
  - Metastases to bone [Unknown]
  - Flatulence [Unknown]
  - Abdominal distension [Unknown]
  - Hyperchlorhydria [Unknown]
  - Dyspepsia [Unknown]
  - Fear [Unknown]
  - Psychiatric symptom [Unknown]
  - Full blood count decreased [Not Recovered/Not Resolved]
  - Liver function test abnormal [Not Recovered/Not Resolved]
  - Head discomfort [Not Recovered/Not Resolved]
  - Platelet count decreased [Unknown]
  - Pyrexia [Recovered/Resolved]
  - Anxiety [Unknown]
  - Constipation [Not Recovered/Not Resolved]
  - Lipids increased [Not Recovered/Not Resolved]
  - Blood triglycerides increased [Unknown]
  - Blood cholesterol increased [Not Recovered/Not Resolved]
  - Heart rate increased [Unknown]
  - Blood pressure systolic increased [Unknown]

NARRATIVE: CASE EVENT DATE: 20241201
